FAERS Safety Report 10904734 (Version 1)
Quarter: 2015Q1

REPORT INFORMATION
  Report Type: Report from Study
  Country: US (occurrence: US)
  Receive Date: 20150311
  Receipt Date: 20150311
  Transmission Date: 20150721
  Serious: Yes (Other)
  Sender: FDA-Public Use
  Company Number: US-ASTELLAS-2015US007600

PATIENT

DRUGS (1)
  1. ERLOTINIB [Suspect]
     Active Substance: ERLOTINIB
     Indication: NON-SMALL CELL LUNG CANCER
     Dosage: UNK, ONCE DAILY ON 28 DAY CYCLE
     Route: 048

REACTIONS (21)
  - Nausea [Recovered/Resolved]
  - Blood bilirubin abnormal [Recovered/Resolved]
  - Oedema [Recovered/Resolved]
  - Hypomagnesaemia [Recovered/Resolved]
  - Fatigue [Not Recovered/Not Resolved]
  - Weight decreased [Not Recovered/Not Resolved]
  - Dry skin [Recovered/Resolved]
  - Arthralgia [Not Recovered/Not Resolved]
  - Activated partial thromboplastin time [Recovered/Resolved]
  - International normalised ratio abnormal [Recovered/Resolved]
  - Conjunctivitis [Recovered/Resolved]
  - Lymphopenia [Recovered/Resolved]
  - Localised oedema [Recovered/Resolved]
  - Palmar-plantar erythrodysaesthesia syndrome [Not Recovered/Not Resolved]
  - Soft tissue infection [Not Recovered/Not Resolved]
  - White blood cell disorder [Not Recovered/Not Resolved]
  - Acne [Recovered/Resolved]
  - Rash [Recovered/Resolved]
  - Diarrhoea [Recovered/Resolved]
  - Vomiting [Recovered/Resolved]
  - Aspartate aminotransferase abnormal [Recovered/Resolved]

NARRATIVE: CASE EVENT DATE: 20071031
